FAERS Safety Report 20001017 (Version 1)
Quarter: 2021Q4

REPORT INFORMATION
  Report Type: Spontaneous
  Country: US (occurrence: US)
  Receive Date: 20211026
  Receipt Date: 20211026
  Transmission Date: 20220304
  Serious: No
  Sender: FDA-Public Use
  Company Number: None

PATIENT
  Age: 44 Year
  Sex: Female

DRUGS (1)
  1. ENBREL [Suspect]
     Active Substance: ETANERCEPT
     Dosage: ?          OTHER FREQUENCY:OTHER;
     Route: 058
     Dates: start: 201909

REACTIONS (3)
  - Kidney infection [None]
  - Urinary tract infection [None]
  - Cyst rupture [None]

NARRATIVE: CASE EVENT DATE: 20211014
